FAERS Safety Report 7861618-7 (Version None)
Quarter: 2011Q4

REPORT INFORMATION
  Report Type: 
  Country: None (occurrence: None)
  Receive Date: 20111026
  Receipt Date: 20111019
  Transmission Date: 20120403
  Serious: Yes (Hospitalization, Other)
  Sender: FDA-Public Use
  Company Number: 2010SP044535

PATIENT
  Age: 28 Year
  Sex: Female

DRUGS (4)
  1. VITAMIN B COMPLEX CAP [Concomitant]
  2. NUVARING [Suspect]
     Indication: CONTRACEPTION
     Dates: start: 20010501, end: 20080801
  3. NUVARING [Suspect]
     Indication: MENSTRUATION IRREGULAR
     Dates: start: 20010501, end: 20080801
  4. GINSENG [Concomitant]

REACTIONS (12)
  - ABDOMINAL PAIN [None]
  - HEADACHE [None]
  - TREMOR [None]
  - OVARIAN CYST [None]
  - PLEURISY [None]
  - TUNNEL VISION [None]
  - HYPOGLYCAEMIA [None]
  - DYSFUNCTIONAL UTERINE BLEEDING [None]
  - PULMONARY EMBOLISM [None]
  - DYSPHEMIA [None]
  - HYPOAESTHESIA ORAL [None]
  - MATERNAL EXPOSURE BEFORE PREGNANCY [None]
